FAERS Safety Report 16813279 (Version 1)
Quarter: 2019Q3

REPORT INFORMATION
  Report Type: Spontaneous
  Country: US (occurrence: US)
  Receive Date: 20190916
  Receipt Date: 20190916
  Transmission Date: 20191005
  Serious: Yes (Other)
  Sender: FDA-Public Use
  Company Number: US-009507513-1909USA003005

PATIENT
  Age: 50 Year
  Sex: Female

DRUGS (1)
  1. STEGLATRO [Suspect]
     Active Substance: ERTUGLIFLOZIN PIDOLATE
     Indication: DIABETES MELLITUS
     Dosage: 15 MILLIGRAM, QD
     Route: 048
     Dates: start: 201905, end: 201907

REACTIONS (6)
  - Anal abscess [Recovering/Resolving]
  - Malaise [Recovering/Resolving]
  - Asthenia [Recovering/Resolving]
  - Genital abscess [Recovering/Resolving]
  - Renal pain [Recovering/Resolving]
  - Genital infection fungal [Recovering/Resolving]

NARRATIVE: CASE EVENT DATE: 201907
